FAERS Safety Report 7842822-0 (Version None)
Quarter: 2011Q4

REPORT INFORMATION
  Report Type: 
  Country: None (occurrence: None)
  Receive Date: 20111025
  Receipt Date: 20111013
  Transmission Date: 20120403
  Serious: Yes (Hospitalization)
  Sender: FDA-Public Use
  Company Number: US-PFIZER INC-2011196772

PATIENT
  Sex: Male
  Weight: 64.399 kg

DRUGS (6)
  1. CRIZOTINIB [Suspect]
     Indication: NON-SMALL CELL LUNG CANCER
     Dosage: 250 MG, 2X/DAY
     Route: 048
     Dates: start: 20110816, end: 20110825
  2. DIOVAN HCT [Concomitant]
     Indication: HYPERTENSION
     Dosage: 320 MG/25MG, 1 TAB,  DAILY
     Route: 048
     Dates: start: 20000101
  3. OXYCODONE [Concomitant]
     Indication: CANCER PAIN
     Dosage: 5 MG, 1 TAB,  Q4 AS NEEDED
     Route: 048
     Dates: start: 20110601
  4. PROCHLORPERAZINE [Concomitant]
     Indication: NAUSEA
     Dosage: 10 MG, AS NEEDED
     Route: 048
     Dates: start: 20110715
  5. AMLODIPINE BESILATE [Concomitant]
     Indication: HYPERTENSION
     Dosage: 5 MG, DAILY
     Route: 048
     Dates: start: 20110601
  6. CODEINE SULFATE [Concomitant]
     Indication: COUGH
     Dosage: 30 MG, AS NEEDED
     Route: 048
     Dates: start: 20110715

REACTIONS (13)
  - GAIT DISTURBANCE [None]
  - HEAD INJURY [None]
  - FALL [None]
  - VENTRICULAR EXTRASYSTOLES [None]
  - PLEURAL EFFUSION [None]
  - ATELECTASIS [None]
  - BLOOD ALKALINE PHOSPHATASE INCREASED [None]
  - BLOOD GLUCOSE INCREASED [None]
  - HYPONATRAEMIA [None]
  - LUNG CONSOLIDATION [None]
  - HYPOPHAGIA [None]
  - ASTHENIA [None]
  - PNEUMONIA ASPIRATION [None]
